FAERS Safety Report 23664706 (Version 1)
Quarter: 2024Q1

REPORT INFORMATION
  Report Type: Spontaneous
  Country: CN (occurrence: None)
  Receive Date: 20240322
  Receipt Date: 20240322
  Transmission Date: 20240410
  Serious: Yes (Other)
  Sender: FDA-Public Use
  Company Number: CN-ROCHE-3524089

PATIENT
  Age: 61 Year
  Sex: Female

DRUGS (10)
  1. POLIVY [Suspect]
     Active Substance: POLATUZUMAB VEDOTIN-PIIQ
     Indication: Diffuse large B-cell lymphoma stage II
     Dosage: POLA-R-CHP, D5
     Route: 065
     Dates: start: 20230915
  2. POLIVY [Suspect]
     Active Substance: POLATUZUMAB VEDOTIN-PIIQ
     Dosage: POLA-R-CHP, D1
     Route: 065
     Dates: start: 20231009
  3. RITUXIMAB [Concomitant]
     Active Substance: RITUXIMAB
     Indication: Diffuse large B-cell lymphoma stage II
     Dosage: POLA-R-CHP, D6, NON-ROCHE DRUGS
     Dates: start: 20230915
  4. RITUXIMAB [Concomitant]
     Active Substance: RITUXIMAB
     Dosage: POLA-R-CHP, D1, NON-ROCHE DRUGS
     Dates: start: 20231009
  5. CYCLOPHOSPHAMIDE [Concomitant]
     Active Substance: CYCLOPHOSPHAMIDE
     Indication: Diffuse large B-cell lymphoma stage II
     Dosage: POLA-R-CHP,  600MG D1, 680MG D5
     Dates: start: 20230915
  6. CYCLOPHOSPHAMIDE [Concomitant]
     Active Substance: CYCLOPHOSPHAMIDE
     Dosage: POLA-R-CHP, D1
     Dates: start: 20231009
  7. DOXORUBICIN [Concomitant]
     Active Substance: DOXORUBICIN
     Indication: Diffuse large B-cell lymphoma stage II
     Dosage: POLA-R-CHP, 20MG D1, 40MG D5
     Dates: start: 20230915
  8. DOXORUBICIN [Concomitant]
     Active Substance: DOXORUBICIN
     Dosage: POLA-R-CHP, D1
     Dates: start: 20231009
  9. PREDNISONE [Concomitant]
     Active Substance: PREDNISONE
     Indication: Diffuse large B-cell lymphoma stage II
     Dosage: POLA-R-CHP
     Dates: start: 20230915
  10. PREDNISONE [Concomitant]
     Active Substance: PREDNISONE
     Dosage: POLA-R-CHP, D1-D5
     Route: 048
     Dates: start: 20231009

REACTIONS (1)
  - Granulocyte count decreased [Unknown]

NARRATIVE: CASE EVENT DATE: 20231103
